FAERS Safety Report 4300424-7 (Version None)
Quarter: 2004Q1

REPORT INFORMATION
  Report Type: 
  Country: None (occurrence: None)
  Receive Date: 20040218
  Receipt Date: 20040218
  Transmission Date: 20041129
  Serious: Yes (Hospitalization)
  Sender: FDA-Public Use
  Company Number: None

PATIENT
  Age: 47 Year
  Sex: Male
  Weight: 88.8 kg

DRUGS (4)
  1. ZIPRASIDONE [Suspect]
     Indication: SCHIZOPHRENIA
     Dosage: 80 MG Q HS
  2. COMBIVENT [Concomitant]
  3. ALPRAZOLAM [Concomitant]
  4. DIVALPROEX SODIUM [Concomitant]

REACTIONS (3)
  - ANGIONEUROTIC OEDEMA [None]
  - DYSKINESIA [None]
  - TONGUE DISORDER [None]
